FAERS Safety Report 6394332-8 (Version None)
Quarter: 2009Q4

REPORT INFORMATION
  Report Type: 
  Country: None (occurrence: None)
  Receive Date: 20091006
  Receipt Date: 20090924
  Transmission Date: 20100525
  Serious: Yes (Hospitalization)
  Sender: FDA-Public Use
  Company Number: CIP09002751

PATIENT
  Age: 65 Year
  Sex: Female

DRUGS (2)
  1. ACTONEL [Suspect]
     Dosage: ORAL
     Route: 048
  2. LEVOTHYROXINE SODIUM [Suspect]
     Indication: THYROID DISORDER

REACTIONS (1)
  - ATRIAL FIBRILLATION [None]
